FAERS Safety Report 12600209 (Version 1)
Quarter: 2016Q3

REPORT INFORMATION
  Report Type: Spontaneous
  Country: US (occurrence: US)
  Receive Date: 20160727
  Receipt Date: 20160727
  Transmission Date: 20161109
  Serious: No
  Sender: FDA-Public Use
  Company Number: US-ELI_LILLY_AND_COMPANY-US201607010388

PATIENT
  Age: 49 Year
  Sex: Female

DRUGS (6)
  1. GEMCITABINE HYDROCHLORIDE. [Suspect]
     Active Substance: GEMCITABINE HYDROCHLORIDE
     Indication: SOFT TISSUE SARCOMA
     Dosage: 900 MG/M2, OTHER
     Route: 065
     Dates: start: 20160720
  2. CARBAMAZEPINE. [Concomitant]
     Active Substance: CARBAMAZEPINE
     Dosage: UNK, UNKNOWN
     Route: 065
  3. BENZONATATE. [Concomitant]
     Active Substance: BENZONATATE
     Indication: COUGH
     Dosage: UNK, UNKNOWN
     Route: 065
  4. DOCETAXEL. [Concomitant]
     Active Substance: DOCETAXEL
     Dosage: UNK, UNKNOWN
     Route: 065
  5. DEXAMETHASONE. [Concomitant]
     Active Substance: DEXAMETHASONE
     Dosage: UNK, UNKNOWN
     Route: 065
  6. LEVOTHYROXINE. [Concomitant]
     Active Substance: LEVOTHYROXINE
     Dosage: UNK, UNKNOWN
     Route: 065

REACTIONS (2)
  - Off label use [Unknown]
  - Pyrexia [Unknown]
